FAERS Safety Report 21324969 (Version 2)
Quarter: 2022Q3

REPORT INFORMATION
  Report Type: Spontaneous
  Country: US (occurrence: US)
  Receive Date: 20220912
  Receipt Date: 20220914
  Transmission Date: 20221027
  Serious: Yes (Other)
  Sender: FDA-Public Use
  Company Number: US-HORIZON THERAPEUTICS-HZN-2022-006931

PATIENT

DRUGS (18)
  1. RAYOS [Suspect]
     Active Substance: PREDNISONE
     Indication: Mucous membrane pemphigoid
     Dosage: 20 MG, QD
     Route: 065
     Dates: start: 2016
  2. METHOTREXATE [Concomitant]
     Active Substance: METHOTREXATE
     Indication: Ocular pemphigoid
     Dosage: 15 MG, WEEKLY
     Dates: start: 2016, end: 201709
  3. METHOTREXATE [Concomitant]
     Active Substance: METHOTREXATE
     Indication: Mucous membrane pemphigoid
     Dosage: 12.5 MG, WEEKLY
     Dates: start: 202102
  4. METHOTREXATE [Concomitant]
     Active Substance: METHOTREXATE
     Dosage: 20 MG, WEEKLY
     Dates: start: 202108
  5. IMMUNE GLOBULIN NOS [Concomitant]
     Active Substance: IMMUNE GLOBULIN NOS
     Indication: Ocular pemphigoid
     Dosage: 2 G/KG, MONTHLY
     Route: 042
     Dates: start: 201709
  6. IMMUNE GLOBULIN NOS [Concomitant]
     Active Substance: IMMUNE GLOBULIN NOS
     Indication: Mucous membrane pemphigoid
  7. RITUXIMAB [Concomitant]
     Active Substance: RITUXIMAB
     Indication: Ocular pemphigoid
     Dosage: 375 MG/M2, WEEKLY (8 WEEKS, MONTHLY FOR 4 MONTHS, AND EVERY 4 MONTHS)
     Dates: start: 201709
  8. RITUXIMAB [Concomitant]
     Active Substance: RITUXIMAB
     Indication: Mucous membrane pemphigoid
  9. MYCOPHENOLATE MOFETIL [Concomitant]
     Active Substance: MYCOPHENOLATE MOFETIL
     Indication: Ocular pemphigoid
     Dosage: 1000 MG, BID
     Dates: start: 201805
  10. MYCOPHENOLATE MOFETIL [Concomitant]
     Active Substance: MYCOPHENOLATE MOFETIL
     Indication: Mucous membrane pemphigoid
  11. CYCLOPHOSPHAMIDE [Concomitant]
     Active Substance: CYCLOPHOSPHAMIDE
     Indication: Ocular pemphigoid
     Dosage: 2 MG/KG, QD
     Dates: end: 202002
  12. CYCLOPHOSPHAMIDE [Concomitant]
     Active Substance: CYCLOPHOSPHAMIDE
     Indication: Mucous membrane pemphigoid
     Dosage: 0.5 MG/KG, QD
  13. ANASTROZOLE [Concomitant]
     Active Substance: ANASTROZOLE
     Indication: Ocular pemphigoid
     Dosage: UNK
     Dates: start: 201907
  14. ANASTROZOLE [Concomitant]
     Active Substance: ANASTROZOLE
     Indication: Mucous membrane pemphigoid
  15. BARICITINIB [Concomitant]
     Active Substance: BARICITINIB
     Indication: Ocular pemphigoid
     Dosage: 2 MG, QD
     Dates: start: 2020
  16. BARICITINIB [Concomitant]
     Active Substance: BARICITINIB
     Indication: Mucous membrane pemphigoid
  17. ZOLEDRONIC [Concomitant]
     Active Substance: ZOLEDRONIC ACID
     Indication: Ocular pemphigoid
     Dosage: UNK
     Route: 042
  18. ZOLEDRONIC [Concomitant]
     Active Substance: ZOLEDRONIC ACID
     Indication: Mucous membrane pemphigoid

REACTIONS (2)
  - Spinal compression fracture [Unknown]
  - Keratitis fungal [Unknown]

NARRATIVE: CASE EVENT DATE: 20180101
